FAERS Safety Report 16001373 (Version 1)
Quarter: 2019Q1

REPORT INFORMATION
  Report Type: Spontaneous
  Country: US (occurrence: US)
  Receive Date: 20190224
  Receipt Date: 20190224
  Transmission Date: 20190418
  Serious: Yes (Hospitalization)
  Sender: FDA-Public Use
  Company Number: None

PATIENT
  Age: 24 Year
  Sex: Female
  Weight: 74.25 kg

DRUGS (1)
  1. NEXPLANON [Suspect]
     Active Substance: ETONOGESTREL
     Indication: CONTRACEPTION
     Dosage: ?          QUANTITY:68 MG IMPLANT;OTHER FREQUENCY:IMPLANT;?
     Route: 058
     Dates: start: 20170501, end: 20180901

REACTIONS (5)
  - Groin pain [None]
  - Adnexal torsion [None]
  - Ovarian cyst [None]
  - Ovarian disorder [None]
  - Ischaemia [None]

NARRATIVE: CASE EVENT DATE: 20180830
